FAERS Safety Report 20392629 (Version 1)
Quarter: 2022Q1

REPORT INFORMATION
  Report Type: Report from Study
  Country: US (occurrence: US)
  Receive Date: 20220128
  Receipt Date: 20220128
  Transmission Date: 20220423
  Serious: Yes (Disabling)
  Sender: FDA-Public Use
  Company Number: US-ARBOR PHARMACEUTICALS, LLC-US-2022ARB000089

PATIENT
  Age: 30 Year
  Sex: Female

DRUGS (6)
  1. GABAPENTIN ENACARBIL [Suspect]
     Active Substance: GABAPENTIN ENACARBIL
     Indication: MELAS syndrome
     Dosage: UNK
  2. VALPROIC ACID [Suspect]
     Active Substance: VALPROIC ACID
     Indication: MELAS syndrome
     Dosage: UNK
  3. LEVETIRACETAM [Suspect]
     Active Substance: LEVETIRACETAM
     Indication: MELAS syndrome
     Dosage: UNK
  4. LAMOTRIGINE [Suspect]
     Active Substance: LAMOTRIGINE
     Indication: MELAS syndrome
     Dosage: UNK
  5. PHENOBARBITAL [Suspect]
     Active Substance: PHENOBARBITAL
     Indication: MELAS syndrome
     Dosage: UNK
  6. LACOSAMIDE [Suspect]
     Active Substance: LACOSAMIDE
     Indication: MELAS syndrome
     Dosage: UNK

REACTIONS (2)
  - Rash [Unknown]
  - Depression [Unknown]
